FAERS Safety Report 25376606 (Version 1)
Quarter: 2025Q2

REPORT INFORMATION
  Report Type: Spontaneous
  Country: EG (occurrence: EG)
  Receive Date: 20250530
  Receipt Date: 20250530
  Transmission Date: 20250716
  Serious: No
  Sender: ALKEM
  Company Number: EG-ALKEM LABORATORIES LIMITED-EG-ALKEM-2025-02851

PATIENT

DRUGS (1)
  1. MIRABEGRON [Suspect]
     Active Substance: MIRABEGRON
     Indication: Hypertonic bladder
     Dosage: UNK, OD (ONCE DAILY IN THE MORNING AFTER A MEAL)
     Route: 048

REACTIONS (1)
  - Constipation [Unknown]
